FAERS Safety Report 4428804-X (Version None)
Quarter: 2004Q3

REPORT INFORMATION
  Report Type: 
  Country: None (occurrence: None)
  Receive Date: 20040818
  Receipt Date: 20040517
  Transmission Date: 20050211
  Serious: Yes (Hospitalization, Disabling)
  Sender: FDA-Public Use
  Company Number: CA-GLAXOSMITHKLINE-A0511216A

PATIENT
  Age: 36 Year
  Sex: Female
  Weight: 82 kg

DRUGS (5)
  1. PAXIL [Suspect]
     Indication: ANXIETY
     Dosage: 40MG PER DAY
     Route: 048
     Dates: start: 19970101
  2. NORVASC [Concomitant]
     Indication: DRUG USE FOR UNKNOWN INDICATION
     Dosage: 15MG PER DAY
  3. MYCOPHENOLATE [Concomitant]
     Indication: PROPHYLAXIS AGAINST TRANSPLANT REJECTION
     Dosage: 1G TWICE PER DAY
  4. PROGRAF [Concomitant]
     Indication: PROPHYLAXIS AGAINST TRANSPLANT REJECTION
     Dosage: 4.5MG TWICE PER DAY
  5. PREDNISONE [Concomitant]
     Indication: PROPHYLAXIS AGAINST TRANSPLANT REJECTION
     Dosage: 10MG PER DAY

REACTIONS (3)
  - COUGH [None]
  - DRUG DEPENDENCE [None]
  - DYSPNOEA [None]
